FAERS Safety Report 6681124-5 (Version None)
Quarter: 2010Q2

REPORT INFORMATION
  Report Type: 
  Country: None (occurrence: None)
  Receive Date: 20100414
  Receipt Date: 20100401
  Transmission Date: 20101027
  Serious: Yes (Hospitalization)
  Sender: FDA-Public Use
  Company Number: FR-ROCHE-694991

PATIENT
  Sex: Male

DRUGS (2)
  1. TAMIFLU [Suspect]
     Route: 048
     Dates: start: 20091018, end: 20091022
  2. PYOSTACINE [Suspect]
     Route: 048
     Dates: start: 20091025, end: 20091026

REACTIONS (1)
  - DRUG RASH WITH EOSINOPHILIA AND SYSTEMIC SYMPTOMS [None]
